FAERS Safety Report 6823934-7 (Version None)
Quarter: 2010Q3

REPORT INFORMATION
  Report Type: 
  Country: None (occurrence: None)
  Receive Date: 20100708
  Receipt Date: 20060921
  Transmission Date: 20110219
  Serious: No
  Sender: FDA-Public Use
  Company Number: US-PFIZER INC-2006114646

PATIENT
  Sex: Female
  Weight: 73.48 kg

DRUGS (3)
  1. CHANTIX [Suspect]
     Dates: start: 20060918
  2. GLUCOPHAGE [Concomitant]
  3. ACETYLSALICYLIC ACID [Concomitant]

REACTIONS (1)
  - NAUSEA [None]
